FAERS Safety Report 4903406-7 (Version None)
Quarter: 2006Q1

REPORT INFORMATION
  Report Type: 
  Country: None (occurrence: None)
  Receive Date: 20060203
  Receipt Date: 20060123
  Transmission Date: 20060701
  Serious: Yes (Life-Threatening, Hospitalization)
  Sender: FDA-Public Use
  Company Number: 2005113712

PATIENT
  Age: 47 Year
  Sex: Female

DRUGS (7)
  1. AZULFIDINE EN-TABS [Suspect]
     Indication: RHEUMATOID ARTHRITIS
     Dosage: 1000 MG, ORAL
     Route: 048
     Dates: start: 20050716, end: 20050807
  2. MEDROL [Concomitant]
  3. MOBIC                       (MELOXCAM) [Concomitant]
  4. STOMILASE                       (ENZYMES NOS) [Concomitant]
  5. MARZULENE S                        (LEVOGLUTAMIDE, SODIUM GUALENATE) [Concomitant]
  6. MAGNESIUM OXIDE                             (MAGNESIUM OXIDE) [Concomitant]
  7. FAMOTIDINE [Concomitant]

REACTIONS (5)
  - LEUKOPENIA [None]
  - LIVER DISORDER [None]
  - PYREXIA [None]
  - RASH GENERALISED [None]
  - TRANSAMINASES INCREASED [None]
